FAERS Safety Report 8747453 (Version 3)
Quarter: 2012Q4

REPORT INFORMATION
  Report Type: 
  Country: JP (occurrence: JP)
  Receive Date: 20120827
  Receipt Date: 20121025
  Transmission Date: 20130627
  Serious: Yes (Other)
  Sender: FDA-Public Use
  Company Number: JP-PFIZER INC-2012203961

PATIENT
  Age: 70 Year
  Sex: Female

DRUGS (1)
  1. SUTENT [Suspect]
     Indication: RENAL CELL CARCINOMA
     Dosage: 50 mg daily
     Route: 048
     Dates: start: 20120809

REACTIONS (5)
  - Urinary tract infection [Unknown]
  - Eczema [Unknown]
  - Diarrhoea [Unknown]
  - Decreased appetite [Unknown]
  - Platelet count decreased [Unknown]
